FAERS Safety Report 15284265 (Version 1)
Quarter: 2018Q4

REPORT INFORMATION
  Report Type: Spontaneous
  Country: US (occurrence: US)
  Receive Date: 20180816
  Receipt Date: 20180816
  Transmission Date: 20190204
  Serious: No
  Sender: FDA-Public Use
  Company Number: US-ASTRAZENECA-2018SE95303

PATIENT
  Sex: Male

DRUGS (5)
  1. PRAVACHOL [Suspect]
     Active Substance: PRAVASTATIN SODIUM
     Route: 065
  2. LIPITOR [Suspect]
     Active Substance: ATORVASTATIN CALCIUM
     Indication: BLOOD CHOLESTEROL ABNORMAL
     Route: 048
  3. ZOCOR [Suspect]
     Active Substance: SIMVASTATIN
     Route: 065
  4. LIPITOR [Suspect]
     Active Substance: ATORVASTATIN CALCIUM
     Indication: CARDIAC DISORDER
     Route: 048
  5. ROSUVASTATIN. [Suspect]
     Active Substance: ROSUVASTATIN
     Indication: BLOOD CHOLESTEROL ABNORMAL
     Route: 048

REACTIONS (7)
  - Fall [Unknown]
  - Blood triglycerides increased [Unknown]
  - Product substitution issue [Unknown]
  - Coordination abnormal [Unknown]
  - Product dose omission [Unknown]
  - Muscle disorder [Unknown]
  - Drug ineffective [Not Recovered/Not Resolved]
